FAERS Safety Report 8887413 (Version 1)
Quarter: 2012Q4

REPORT INFORMATION
  Report Type: Spontaneous
  Country: US (occurrence: None)
  Receive Date: 20121101
  Receipt Date: 20121101
  Transmission Date: 20130627
  Serious: Yes (Hospitalization)
  Sender: FDA-Public Use
  Company Number: None

PATIENT
  Age: 81 Year
  Sex: Female
  Weight: 94.3 kg

DRUGS (12)
  1. ASA [Suspect]
     Indication: CEREBROVASCULAR ACCIDENT PROPHYLAXIS
     Dosage: 81MG DAILY PO
CHRONIC
     Route: 048
  2. RIVAROXABAN [Suspect]
     Indication: CEREBROVASCULAR ACCIDENT PROPHYLAXIS
     Dosage: 15MG DAILY PO
RECENT
     Route: 048
  3. CALCIUM +VIT D [Concomitant]
  4. FISH OIL [Concomitant]
  5. FIORICET [Concomitant]
  6. SYNTHROID [Concomitant]
  7. PRAVASTATIN [Concomitant]
  8. BUMEX [Concomitant]
  9. COREG [Concomitant]
  10. TIKOSYN [Concomitant]
  11. COENZYME [Concomitant]
  12. ALLOPURINOL [Concomitant]

REACTIONS (4)
  - Fatigue [None]
  - Anaemia [None]
  - Large intestine polyp [None]
  - Diverticulum intestinal [None]
